FAERS Safety Report 24455561 (Version 2)
Quarter: 2024Q4

REPORT INFORMATION
  Report Type: Report from Study
  Country: CA (occurrence: CA)
  Receive Date: 20241017
  Receipt Date: 20241018
  Transmission Date: 20250114
  Serious: No
  Sender: ROCHE
  Company Number: CA-ROCHE-3496571

PATIENT
  Sex: Female

DRUGS (15)
  1. RITUXAN [Suspect]
     Active Substance: RITUXIMAB
     Indication: Rheumatoid arthritis
     Route: 041
     Dates: start: 20120704, end: 20170602
  2. RITUXAN [Suspect]
     Active Substance: RITUXIMAB
     Route: 041
     Dates: start: 20191204, end: 20200812
  3. RITUXAN [Suspect]
     Active Substance: RITUXIMAB
     Route: 041
     Dates: start: 20210224, end: 20220119
  4. RITUXAN [Suspect]
     Active Substance: RITUXIMAB
     Dosage: MORE DOSAGE INFO IS SINGLE INFUSION
     Route: 041
     Dates: start: 20220201, end: 20220201
  5. RITUXAN [Suspect]
     Active Substance: RITUXIMAB
     Route: 041
     Dates: start: 20201110
  6. ACETAMINOPHEN [Concomitant]
     Active Substance: ACETAMINOPHEN
     Route: 048
     Dates: start: 20140304, end: 20220201
  7. ACETAMINOPHEN [Concomitant]
     Active Substance: ACETAMINOPHEN
     Route: 048
     Dates: start: 20221110
  8. BENADRYL [Concomitant]
     Active Substance: DIPHENHYDRAMINE HYDROCHLORIDE
     Route: 048
     Dates: start: 20140304, end: 20170602
  9. BENADRYL [Concomitant]
     Active Substance: DIPHENHYDRAMINE HYDROCHLORIDE
     Route: 048
     Dates: start: 20191204
  10. CALCIUM [Concomitant]
     Active Substance: CALCIUM
  11. CRESTOR [Concomitant]
     Active Substance: ROSUVASTATIN CALCIUM
  12. DEXILANT [Concomitant]
     Active Substance: DEXLANSOPRAZOLE
  13. IMURAN [Concomitant]
     Active Substance: AZATHIOPRINE
  14. METHYLPREDNISOLONE [Concomitant]
     Active Substance: METHYLPREDNISOLONE
     Route: 042
     Dates: start: 20140304
  15. PROLIA [Concomitant]
     Active Substance: DENOSUMAB

REACTIONS (1)
  - Influenza [Unknown]
